FAERS Safety Report 5994315-3 (Version None)
Quarter: 2008Q4

REPORT INFORMATION
  Report Type: 
  Country: None (occurrence: None)
  Receive Date: 20081212
  Receipt Date: 20080827
  Transmission Date: 20090506
  Serious: No
  Sender: FDA-Public Use
  Company Number: US-AMGEN-KDL303341

PATIENT
  Sex: Female

DRUGS (3)
  1. ENBREL [Suspect]
     Indication: RHEUMATOID ARTHRITIS
     Route: 058
     Dates: start: 20071112
  2. ENBREL [Suspect]
     Indication: PSORIASIS
  3. ENBREL [Suspect]
     Indication: OSTEOARTHRITIS

REACTIONS (8)
  - BACK INJURY [None]
  - BIPOLAR I DISORDER [None]
  - EPICONDYLITIS [None]
  - INSOMNIA [None]
  - JOINT LOCK [None]
  - MUSCULOSKELETAL PAIN [None]
  - PSORIASIS [None]
  - RHEUMATOID ARTHRITIS [None]
